FAERS Safety Report 6011987-8 (Version None)
Quarter: 2008Q4

REPORT INFORMATION
  Report Type: 
  Country: None (occurrence: None)
  Receive Date: 20081218
  Receipt Date: 20081020
  Transmission Date: 20090506
  Serious: No
  Sender: FDA-Public Use
  Company Number: US-ASTRAZENECA-2008UW23151

PATIENT
  Age: 43 Year
  Sex: Female
  Weight: 97.5 kg

DRUGS (2)
  1. CRESTOR [Suspect]
     Indication: BLOOD CHOLESTEROL INCREASED
     Route: 048
     Dates: start: 20080401
  2. PREVACID [Concomitant]
     Dosage: DAILY

REACTIONS (2)
  - BLOOD CHOLESTEROL INCREASED [None]
  - MUSCLE SPASMS [None]
